FAERS Safety Report 8080448-7 (Version None)
Quarter: 2012Q1

REPORT INFORMATION
  Report Type: 
  Country: None (occurrence: None)
  Receive Date: 20120130
  Receipt Date: 20120125
  Transmission Date: 20120608
  Serious: Yes (Other)
  Sender: FDA-Public Use
  Company Number: US-JNJFOC-20120111496

PATIENT
  Sex: Male

DRUGS (4)
  1. ACCUPRIL [Concomitant]
     Indication: BLOOD PRESSURE
     Route: 065
  2. BENADRYL [Suspect]
     Indication: PRURITUS
     Route: 048
     Dates: start: 20120101, end: 20120101
  3. HYDROXYZINE [Concomitant]
     Indication: PRURITUS
     Route: 065
  4. BENADRYL [Suspect]
     Indication: RASH
     Route: 048
     Dates: start: 20120101, end: 20120101

REACTIONS (4)
  - THERAPEUTIC RESPONSE UNEXPECTED [None]
  - OFF LABEL USE [None]
  - ROAD TRAFFIC ACCIDENT [None]
  - SOMNOLENCE [None]
